FAERS Safety Report 16565362 (Version 1)
Quarter: 2019Q3

REPORT INFORMATION
  Report Type: Spontaneous
  Country: US (occurrence: US)
  Receive Date: 20190531
  Receipt Date: 20190531
  Transmission Date: 20191004
  Serious: Yes (Hospitalization, Other)
  Sender: FDA-Public Use
  Company Number: None

PATIENT
  Age: 55 Year
  Sex: Female

DRUGS (23)
  1. OPSUMIT [Suspect]
     Active Substance: MACITENTAN
     Indication: PULMONARY ARTERIAL HYPERTENSION
     Route: 048
     Dates: start: 201511
  2. ALBUTEROL HFA [Concomitant]
     Active Substance: ALBUTEROL SULFATE
  3. BENZONATATE. [Concomitant]
     Active Substance: BENZONATATE
  4. APAP-CODEINE [Concomitant]
  5. TRAMADOL. [Concomitant]
     Active Substance: TRAMADOL
  6. ONDANSETRON [Concomitant]
     Active Substance: ONDANSETRON
  7. VELETRI [Concomitant]
     Active Substance: EPOPROSTENOL
  8. NORCO [Concomitant]
     Active Substance: ACETAMINOPHEN\HYDROCODONE BITARTRATE
  9. GLIPIZIDA [Concomitant]
  10. PREGABALIN. [Concomitant]
     Active Substance: PREGABALIN
  11. WARFARIN [Concomitant]
     Active Substance: WARFARIN
  12. TORSEMIDE. [Concomitant]
     Active Substance: TORSEMIDE
  13. HUMULIN N [Concomitant]
     Active Substance: INSULIN HUMAN
  14. FLONASE [Concomitant]
     Active Substance: FLUTICASONE PROPIONATE
  15. NALOXONE NASAL SPRAY [Concomitant]
  16. ADVAIR DISKUS [Concomitant]
     Active Substance: FLUTICASONE PROPIONATE\SALMETEROL XINAFOATE
  17. CICALEPRAM [Concomitant]
  18. METFORMINE [Concomitant]
     Active Substance: METFORMIN HYDROCHLORIDE
  19. METFORMIN [Concomitant]
     Active Substance: METFORMIN HYDROCHLORIDE
  20. MONTELUKOST [Concomitant]
  21. DIGOXIN. [Concomitant]
     Active Substance: DIGOXIN
  22. LORAZEPEM [Concomitant]
  23. SPIRONOLACTONE. [Concomitant]
     Active Substance: SPIRONOLACTONE

REACTIONS (2)
  - Sepsis [None]
  - Pneumonia [None]

NARRATIVE: CASE EVENT DATE: 20190513
